FAERS Safety Report 23979009 (Version 1)
Quarter: 2024Q2

REPORT INFORMATION
  Report Type: Spontaneous
  Country: US (occurrence: US)
  Receive Date: 20240615
  Receipt Date: 20240615
  Transmission Date: 20240715
  Serious: Yes (Other)
  Sender: FDA-Public Use
  Company Number: US-ABBVIE-5800702

PATIENT
  Sex: Female

DRUGS (2)
  1. REFRESH RELIEVA PF [Suspect]
     Active Substance: CARBOXYMETHYLCELLULOSE SODIUM\GLYCERIN
     Indication: Product used for unknown indication
     Dosage: CMC 5MG/ML;GLYCERIN 9MG/ML SOL MD
     Route: 047
  2. CARBOXYMETHYLCELLULOSE SODIUM\GLYCERIN [Suspect]
     Active Substance: CARBOXYMETHYLCELLULOSE SODIUM\GLYCERIN
     Indication: Product used for unknown indication
     Dosage: CMC;GLYCERIN 0.5% SOL
     Route: 047

REACTIONS (2)
  - Cataract [Unknown]
  - Eye operation [Unknown]
